FAERS Safety Report 6071296-8 (Version None)
Quarter: 2009Q1

REPORT INFORMATION
  Report Type: 
  Country: None (occurrence: None)
  Receive Date: 20090202
  Receipt Date: 20080801
  Transmission Date: 20090719
  Serious: Yes (Other)
  Sender: FDA-Public Use
  Company Number: 2008-BP-12082RO

PATIENT
  Age: 48 Year
  Sex: Female

DRUGS (4)
  1. CITALOPRAM (CITALOPRAM) (VERUM) [Suspect]
  2. GABAPENTIN [Concomitant]
  3. ALPRAZOLAM [Concomitant]
  4. BUPROPION HYDROCHLORIDE (BUPROPION HYDROCHLORIDE) (BUPROPION HYDROCHLO [Concomitant]

REACTIONS (1)
  - SUICIDAL IDEATION [None]
